FAERS Safety Report 24214280 (Version 2)
Quarter: 2024Q3

REPORT INFORMATION
  Report Type: Spontaneous
  Country: GB (occurrence: GB)
  Receive Date: 20240815
  Receipt Date: 20240925
  Transmission Date: 20241016
  Serious: Yes (Other)
  Sender: IPSEN
  Company Number: GB-ADVANZ PHARMA-202401000547

PATIENT
  Sex: Female

DRUGS (2)
  1. LANREOTIDE ACETATE [Suspect]
     Active Substance: LANREOTIDE ACETATE
     Indication: Neuroendocrine tumour
     Route: 065
  2. LANREOTIDE ACETATE [Suspect]
     Active Substance: LANREOTIDE ACETATE
     Indication: Neuroendocrine tumour
     Dosage: 120 MG E28D (DEEP SUBCUTANEOUS)
     Route: 058
     Dates: start: 20231026

REACTIONS (9)
  - Syncope [Recovered/Resolved]
  - Defaecation urgency [Unknown]
  - Dyspnoea [Recovered/Resolved]
  - Hypertension [Unknown]
  - Tremor [Recovered/Resolved]
  - Dehydration [Recovered/Resolved]
  - Blood sodium decreased [Unknown]
  - Treatment delayed [Unknown]
  - Product availability issue [Unknown]
